FAERS Safety Report 16139373 (Version 1)
Quarter: 2019Q1

REPORT INFORMATION
  Report Type: Spontaneous
  Country: FR (occurrence: FR)
  Receive Date: 20190330
  Receipt Date: 20190330
  Transmission Date: 20190418
  Serious: Yes (Death)
  Sender: FDA-Public Use
  Company Number: FR-UCBSA-2019012612

PATIENT
  Age: 2 Month
  Sex: Female
  Weight: 4.1 kg

DRUGS (5)
  1. LEVOCARNIL [Suspect]
     Active Substance: LEVOCARNITINE
     Indication: METHYLMALONIC ACIDURIA
     Dosage: 750 MG DAILY
     Route: 048
     Dates: start: 201812, end: 20190201
  2. CYANOCOBALAMINE [Suspect]
     Active Substance: CYANOCOBALAMIN
     Indication: VITAMIN SUPPLEMENTATION
     Dosage: 1 MG DAILY
     Route: 048
     Dates: start: 201812, end: 20190201
  3. KEPPRA [Suspect]
     Active Substance: LEVETIRACETAM
     Indication: STATUS EPILEPTICUS
     Dosage: 120 MG DAILY
     Route: 048
     Dates: start: 201812, end: 20190201
  4. ZYMAD [Suspect]
     Active Substance: CHOLECALCIFEROL
     Indication: VITAMIN SUPPLEMENTATION
     Dosage: 2 GTT DAILY
     Route: 048
     Dates: start: 201812, end: 20190201
  5. CARBAGLU [Suspect]
     Active Substance: CARGLUMIC ACID
     Indication: METHYLMALONIC ACIDURIA
     Dosage: 400 MG DAILY
     Route: 048
     Dates: start: 201812, end: 20190201

REACTIONS (1)
  - Sudden infant death syndrome [Fatal]

NARRATIVE: CASE EVENT DATE: 20190201
